FAERS Safety Report 8266223-9 (Version None)
Quarter: 2012Q1

REPORT INFORMATION
  Report Type: 
  Country: None (occurrence: None)
  Receive Date: 20120327
  Receipt Date: 20100120
  Transmission Date: 20120608
  Serious: Yes (Other)
  Sender: FDA-Public Use
  Company Number: PHEH2009US12024

PATIENT
  Age: 58 Year
  Sex: Female
  Weight: 86.4 kg

DRUGS (4)
  1. ONDANSETRON [Concomitant]
  2. GLEEVEC [Suspect]
     Indication: GASTROINTESTINAL CARCINOMA
     Dosage: 400 MG, QD, ORAL,  800 MG DAILY, ORAL
     Route: 048
     Dates: start: 20091101
  3. GLEEVEC [Suspect]
     Indication: GASTROINTESTINAL CARCINOMA
     Dosage: 400 MG, QD, ORAL,  800 MG DAILY, ORAL
     Route: 048
     Dates: start: 20070109
  4. PROCHLORPERAZINE MALEATE [Concomitant]

REACTIONS (21)
  - NEOPLASM MALIGNANT [None]
  - NAUSEA [None]
  - WEIGHT DECREASED [None]
  - FATIGUE [None]
  - BLOOD LACTATE DEHYDROGENASE INCREASED [None]
  - PROTEIN TOTAL INCREASED [None]
  - DECREASED APPETITE [None]
  - METASTASES TO LUNG [None]
  - EYE SWELLING [None]
  - HAEMOGLOBIN DECREASED [None]
  - EYE PRURITUS [None]
  - BACK PAIN [None]
  - METASTASES TO PERITONEUM [None]
  - DEPRESSION [None]
  - TOXICITY TO VARIOUS AGENTS [None]
  - ABDOMINAL DISCOMFORT [None]
  - ABDOMINAL DISTENSION [None]
  - DYSGEUSIA [None]
  - HYPERLIPIDAEMIA [None]
  - LACRIMATION INCREASED [None]
  - DIARRHOEA [None]
